FAERS Safety Report 20743269 (Version 2)
Quarter: 2022Q2

REPORT INFORMATION
  Report Type: Spontaneous
  Country: US (occurrence: US)
  Receive Date: 20220425
  Receipt Date: 20220521
  Transmission Date: 20220721
  Serious: Yes (Life-Threatening, Other)
  Sender: FDA-Public Use
  Company Number: US-JNJFOC-20220440874

PATIENT

DRUGS (1)
  1. XARELTO [Suspect]
     Active Substance: RIVAROXABAN
     Indication: Product used for unknown indication
     Route: 048

REACTIONS (4)
  - Cerebrovascular accident [Unknown]
  - Embolism venous [Unknown]
  - Therapeutic product effect decreased [Unknown]
  - Haemorrhage [Unknown]
